FAERS Safety Report 12536515 (Version 3)
Quarter: 2016Q3

REPORT INFORMATION
  Report Type: Spontaneous
  Country: US (occurrence: US)
  Receive Date: 20160707
  Receipt Date: 20160927
  Transmission Date: 20161109
  Serious: No
  Sender: FDA-Public Use
  Company Number: US-PFIZER INC-2016323180

PATIENT
  Age: 71 Year
  Sex: Female
  Weight: 47 kg

DRUGS (1)
  1. RAPAMUNE [Suspect]
     Active Substance: SIROLIMUS
     Indication: LIVER TRANSPLANT
     Dosage: 2 MG, ONCE A DAY
     Dates: start: 20000701

REACTIONS (4)
  - Product use issue [Unknown]
  - Malaise [Unknown]
  - Intentional product misuse [Unknown]
  - Depression [Unknown]

NARRATIVE: CASE EVENT DATE: 2000
